FAERS Safety Report 24777092 (Version 1)
Quarter: 2024Q4

REPORT INFORMATION
  Report Type: Spontaneous
  Country: JP (occurrence: JP)
  Receive Date: 20241226
  Receipt Date: 20241226
  Transmission Date: 20250115
  Serious: Yes (Other)
  Sender: RANBAXY
  Company Number: JP-SUN PHARMACEUTICAL INDUSTRIES LTD-2024RR-486309

PATIENT
  Age: 32 Year
  Sex: Female

DRUGS (9)
  1. OXALIPLATIN [Suspect]
     Active Substance: OXALIPLATIN
     Indication: Neoplasm malignant
     Dosage: UNK
     Route: 065
  2. OXALIPLATIN [Suspect]
     Active Substance: OXALIPLATIN
     Dosage: UNK
     Route: 065
  3. LEUCOVORIN CALCIUM [Suspect]
     Active Substance: LEUCOVORIN CALCIUM
     Indication: Neoplasm malignant
     Dosage: UNK
     Route: 065
  4. LEUCOVORIN CALCIUM [Suspect]
     Active Substance: LEUCOVORIN CALCIUM
     Dosage: UNK
     Route: 065
  5. LEUCOVORIN CALCIUM [Suspect]
     Active Substance: LEUCOVORIN CALCIUM
     Dosage: UNK
     Route: 065
  6. IRINOTECAN [Suspect]
     Active Substance: IRINOTECAN
     Indication: Neoplasm malignant
     Dosage: UNK
     Route: 065
  7. FLUOROURACIL [Suspect]
     Active Substance: FLUOROURACIL
     Indication: Neoplasm malignant
     Dosage: UNK
     Route: 065
  8. FLUOROURACIL [Suspect]
     Active Substance: FLUOROURACIL
     Dosage: UNK
     Route: 065
  9. FLUOROURACIL [Suspect]
     Active Substance: FLUOROURACIL
     Dosage: UNK
     Route: 065

REACTIONS (3)
  - Neuropathy peripheral [Unknown]
  - Disease recurrence [Unknown]
  - Drug ineffective [Unknown]
